FAERS Safety Report 17896157 (Version 1)
Quarter: 2020Q2

REPORT INFORMATION
  Report Type: Spontaneous
  Country: US (occurrence: US)
  Receive Date: 20200615
  Receipt Date: 20200615
  Transmission Date: 20200714
  Serious: Yes (Hospitalization)
  Sender: FDA-Public Use
  Company Number: US-SHIRE-US202019219

PATIENT
  Sex: Male

DRUGS (1)
  1. VPRIV [Suspect]
     Active Substance: VELAGLUCERASE ALFA
     Indication: GAUCHER^S DISEASE TYPE I
     Dosage: UNK, 2X A WEEK
     Route: 042
     Dates: start: 20100604

REACTIONS (2)
  - Blood calcium increased [Not Recovered/Not Resolved]
  - Product dose omission [Recovering/Resolving]
